FAERS Safety Report 9347067 (Version 2)
Quarter: 2013Q4

REPORT INFORMATION
  Report Type: Report from Study
  Country: BR (occurrence: BR)
  Receive Date: 20130613
  Receipt Date: 20131008
  Transmission Date: 20140711
  Serious: Yes (Hospitalization)
  Sender: FDA-Public Use
  Company Number: BR-ELI_LILLY_AND_COMPANY-BR201305003995

PATIENT
  Age: 78 Year
  Sex: Male
  Weight: 45 kg

DRUGS (3)
  1. TERIPARATIDE [Suspect]
     Indication: OSTEOPOROSIS
     Dosage: 20 UG, QD
     Route: 058
  2. RISPERIDONE [Concomitant]
     Indication: DEMENTIA ALZHEIMER^S TYPE
     Dosage: 1 MG, BID
     Route: 065
  3. HALDOL                             /00027401/ [Concomitant]
     Indication: DEMENTIA ALZHEIMER^S TYPE
     Dosage: 6 GTT, BID
     Route: 065

REACTIONS (5)
  - Dementia Alzheimer^s type [Unknown]
  - Dyspnoea [Unknown]
  - Hypophagia [Unknown]
  - Asthenia [Unknown]
  - Urticaria [Unknown]
